FAERS Safety Report 17217369 (Version 1)
Quarter: 2019Q4

REPORT INFORMATION
  Report Type: Spontaneous
  Country: US (occurrence: US)
  Receive Date: 20191231
  Receipt Date: 20191231
  Transmission Date: 20200122
  Serious: Yes (Hospitalization, Other)
  Sender: FDA-Public Use
  Company Number: US-SA-2019SA358158

PATIENT

DRUGS (1)
  1. AUBAGIO [Suspect]
     Active Substance: TERIFLUNOMIDE
     Dosage: UNK, UNK

REACTIONS (5)
  - Dizziness [Recovering/Resolving]
  - Generalised tonic-clonic seizure [Recovering/Resolving]
  - Fatigue [Recovering/Resolving]
  - Herpes virus infection [Unknown]
  - Lymphocyte count decreased [Recovering/Resolving]
